FAERS Safety Report 7192628-3 (Version None)
Quarter: 2010Q4

REPORT INFORMATION
  Report Type: 
  Country: None (occurrence: None)
  Receive Date: 20101223
  Receipt Date: 20100826
  Transmission Date: 20110411
  Serious: No
  Sender: FDA-Public Use
  Company Number: US-AMGEN-KDL434198

PATIENT

DRUGS (7)
  1. ENBREL [Suspect]
     Indication: PRODUCT USED FOR UNKNOWN INDICATION
     Dosage: 50 MG, QWK
     Route: 058
  2. METHOTREXATE [Concomitant]
     Dosage: 2.5 MG, UNK
  3. FOLIC ACID [Concomitant]
     Dosage: 1 MG, UNK
  4. PHENOBARBITAL SODIUM 100MG CAP [Concomitant]
     Dosage: 100 MG, UNK
  5. CALCIUM [Concomitant]
     Dosage: UNK UNK, UNK
  6. ACETAMINOPHEN [Concomitant]
     Dosage: 325 MG, UNK
  7. ERGOCALCIFEROL [Concomitant]
     Dosage: UNK UNK, UNK

REACTIONS (4)
  - ARTHRALGIA [None]
  - JOINT SWELLING [None]
  - NASOPHARYNGITIS [None]
  - OEDEMA PERIPHERAL [None]
